FAERS Safety Report 19267908 (Version 1)
Quarter: 2021Q2

REPORT INFORMATION
  Report Type: Spontaneous
  Country: IL (occurrence: IL)
  Receive Date: 20210517
  Receipt Date: 20210517
  Transmission Date: 20210717
  Serious: Yes (Other)
  Sender: FDA-Public Use
  Company Number: IL-PFIZER INC-2021492836

PATIENT

DRUGS (1)
  1. AZENIL (AZITHROMYCIN) [Suspect]
     Active Substance: AZITHROMYCIN
     Indication: BACTERIAL TEST POSITIVE
     Dosage: UNK
     Dates: start: 201804

REACTIONS (6)
  - Off label use [Unknown]
  - Impaired quality of life [Unknown]
  - Dysuria [Not Recovered/Not Resolved]
  - Depression [Unknown]
  - Burning sensation [Not Recovered/Not Resolved]
  - Frustration tolerance decreased [Unknown]

NARRATIVE: CASE EVENT DATE: 201804
